FAERS Safety Report 21981766 (Version 4)
Quarter: 2023Q2

REPORT INFORMATION
  Report Type: Report from Study
  Country: KR (occurrence: KR)
  Receive Date: 20230212
  Receipt Date: 20230407
  Transmission Date: 20230721
  Serious: Yes (Other)
  Sender: FDA-Public Use
  Company Number: KR-002147023-NVSC2022KR194447

PATIENT
  Age: 66 Year
  Sex: Female
  Weight: 42 kg

DRUGS (5)
  1. PIQRAY [Suspect]
     Active Substance: ALPELISIB
     Indication: Hormone receptor positive HER2 negative breast cancer
     Dosage: 300 MG, QD
     Route: 048
     Dates: start: 20220411
  2. PIQRAY [Suspect]
     Active Substance: ALPELISIB
     Dosage: 300 MG, QD
     Route: 048
     Dates: start: 20220803, end: 20220927
  3. PIQRAY [Suspect]
     Active Substance: ALPELISIB
     Dosage: 250 MG, QD
     Route: 048
     Dates: start: 20220928
  4. PIQRAY [Suspect]
     Active Substance: ALPELISIB
     Dosage: 250, QD
     Route: 048
     Dates: start: 20221013
  5. FASLODEX [Concomitant]
     Active Substance: FULVESTRANT
     Indication: Hormone receptor positive HER2 negative breast cancer
     Dosage: 500 MG, QD
     Route: 030
     Dates: start: 20220411

REACTIONS (3)
  - Diabetes mellitus [Recovering/Resolving]
  - Alanine aminotransferase increased [Recovered/Resolved]
  - Aspartate aminotransferase increased [Recovered/Resolved]

NARRATIVE: CASE EVENT DATE: 20220803
